FAERS Safety Report 13277611 (Version 2)
Quarter: 2017Q1

REPORT INFORMATION
  Report Type: Report from Study
  Country: KR (occurrence: KR)
  Receive Date: 20170228
  Receipt Date: 20170310
  Transmission Date: 20170428
  Serious: Yes (Hospitalization)
  Sender: FDA-Public Use
  Company Number: KR-ASTRAZENECA-2017SE20512

PATIENT
  Age: 23640 Day
  Sex: Female

DRUGS (31)
  1. TAGRISSO [Suspect]
     Active Substance: OSIMERTINIB
     Indication: NON-SMALL CELL LUNG CANCER
     Route: 048
     Dates: start: 20150511
  2. MIDAZOLAM [Concomitant]
     Active Substance: MIDAZOLAM HYDROCHLORIDE
     Indication: OESOPHAGOGASTRODUODENOSCOPY
     Route: 048
     Dates: start: 20161114
  3. HYALURONATE SODIUM [Concomitant]
     Active Substance: HYALURONATE SODIUM
     Indication: DRY EYE
     Dosage: AS REQUIRED
     Route: 047
     Dates: start: 20150605
  4. MECPERAN 5MG TAB [Concomitant]
     Indication: DYSPEPSIA
     Route: 048
     Dates: start: 20150624
  5. TYLENO TAB 500MG [Concomitant]
     Indication: INFLUENZA LIKE ILLNESS
     Route: 048
     Dates: start: 20160225
  6. ALMAGATE [Concomitant]
     Active Substance: ALMAGATE
     Indication: INFLUENZA LIKE ILLNESS
     Route: 048
     Dates: start: 20160706
  7. ACTINAMIDE 1MG/2ML [Concomitant]
     Indication: CHEMOTHERAPY
     Dosage: 1.0MG ONCE/SINGLE ADMINISTRATION
     Route: 030
     Dates: start: 20150507
  8. MOXIFLOXACIN. [Concomitant]
     Active Substance: MOXIFLOXACIN
     Indication: PERSISTENT CORNEAL EPITHELIAL DEFECT
     Dosage: 12 DROPS EVERY 2 HOURS
     Route: 047
     Dates: start: 20150828
  9. ESPERSON 15G GEL [Concomitant]
     Indication: SEBORRHOEIC DERMATITIS
     Dosage: TWO TIMES A DAY
     Route: 003
     Dates: start: 20151104
  10. ESPERSON 15G GEL [Concomitant]
     Indication: SEBORRHOEIC DERMATITIS
     Dosage: TWO TIMES A DAY
     Route: 003
     Dates: start: 20151210
  11. FLUMETHORONE EYE DROPS 0.1% [Concomitant]
     Indication: KERATITIS
     Dosage: 3 DROPS THREE TIMES A DAY
     Route: 047
     Dates: start: 20150508
  12. DEXAMETHASONE. [Concomitant]
     Active Substance: DEXAMETHASONE
     Indication: CHEMOTHERAPY
     Route: 048
     Dates: start: 20150510
  13. CRAVIT EYE DROP [Concomitant]
     Indication: KERATITIS
     Dosage: 3 DROPS THREE TIMES A DAY
     Route: 047
     Dates: start: 20150805
  14. ANYCOUGH CAP 300MG [Concomitant]
     Indication: INFLUENZA LIKE ILLNESS
     Route: 048
     Dates: start: 20150828
  15. BRONUCK OPH SOLN 0.1% 5ML [Concomitant]
     Indication: KERATITIS
     Route: 047
     Dates: start: 20151209
  16. ESPERSON 15G GEL [Concomitant]
     Indication: PRURITUS
     Dosage: TWO TIMES A DAY
     Route: 003
     Dates: start: 20151104
  17. LEVODROPROPIZINE [Concomitant]
     Active Substance: LEVODROPROPIZINE
     Indication: INFLUENZA LIKE ILLNESS
     Route: 048
     Dates: start: 20160706
  18. ESPERSON 15G GEL [Concomitant]
     Indication: PRURITUS
     Dosage: TWO TIMES A DAY
     Route: 003
     Dates: start: 20151210
  19. CRAVIT EYE DROP [Concomitant]
     Indication: KERATITIS
     Dosage: 03 DROPS THREE TIMES A DAY
     Route: 047
     Dates: start: 20160412
  20. CLARITHROMYCIN. [Concomitant]
     Active Substance: CLARITHROMYCIN
     Indication: INFLUENZA LIKE ILLNESS
     Route: 048
     Dates: start: 20160706
  21. FOLIC ACID. [Concomitant]
     Active Substance: FOLIC ACID
     Indication: CHEMOTHERAPY
     Route: 048
     Dates: start: 20150506
  22. ALDRIN GEL 1G/PKG [Concomitant]
     Indication: DYSPEPSIA
     Dosage: 3 PKG THREE TIMES A DAY
     Route: 048
     Dates: start: 20150624
  23. TARIVID OPH OINT [Concomitant]
     Indication: PERSISTENT CORNEAL EPITHELIAL DEFECT
     Dosage: EVERY DAY
     Route: 047
     Dates: start: 20150828
  24. BRONUCK OPH SOLN 0.1% 5ML [Concomitant]
     Indication: KERATITIS
     Route: 047
     Dates: start: 20151209
  25. TYLENO TAB 500MG [Concomitant]
     Indication: SEBORRHOEIC DERMATITIS
     Route: 048
     Dates: start: 20160225
  26. DERMOVATE 0.05% (CLOBETASOL) [Concomitant]
     Indication: PSORIASIS
     Route: 003
     Dates: start: 20160412
  27. ACETYLCYSTEINE. [Concomitant]
     Active Substance: ACETYLCYSTEINE
     Indication: INFLUENZA LIKE ILLNESS
     Route: 048
     Dates: start: 20160706
  28. CRAVIT EYE DROP [Concomitant]
     Indication: KERATITIS
     Dosage: 3 DROPS THREE TIMES A DAY
     Route: 047
     Dates: start: 20150605
  29. ALDRIN GEL 1G/PKG [Concomitant]
     Indication: DYSPEPSIA
     Dosage: 3 PKG THREE TIMES A DAY
     Route: 048
     Dates: start: 20150828
  30. ALLEGRA TAB [Concomitant]
     Indication: INFLUENZA LIKE ILLNESS
     Route: 048
     Dates: start: 20150828
  31. LOXOPROFEN [Concomitant]
     Active Substance: LOXOPROFEN
     Indication: INFLUENZA LIKE ILLNESS
     Route: 048
     Dates: start: 20160706

REACTIONS (1)
  - Inflammation [Not Recovered/Not Resolved]

NARRATIVE: CASE EVENT DATE: 20170206
